FAERS Safety Report 9470862 (Version 1)
Quarter: 2013Q3

REPORT INFORMATION
  Report Type: Spontaneous
  Country: US (occurrence: US)
  Receive Date: 20130822
  Receipt Date: 20130822
  Transmission Date: 20140515
  Serious: No
  Sender: FDA-Public Use
  Company Number: US-PFIZER INC-2013238902

PATIENT
  Age: 77 Year
  Sex: Female
  Weight: 86.17 kg

DRUGS (3)
  1. NORVASC [Suspect]
     Indication: HYPERTENSION
     Dosage: 10 MG, 1X/DAY
     Route: 048
  2. NORVASC [Suspect]
     Dosage: HALF OF 10 MG TABLET, 1X/DAY
     Route: 048
     Dates: start: 2013
  3. COZAAR [Suspect]
     Indication: HYPERTENSION
     Dosage: UNK
     Dates: start: 2013

REACTIONS (2)
  - Blood glucose abnormal [Unknown]
  - Drug ineffective [Unknown]
